FAERS Safety Report 6581413-9 (Version None)
Quarter: 2010Q1

REPORT INFORMATION
  Report Type: 
  Country: None (occurrence: None)
  Receive Date: 20100215
  Receipt Date: 20100202
  Transmission Date: 20100710
  Serious: Yes (Hospitalization)
  Sender: FDA-Public Use
  Company Number: A0795343A

PATIENT
  Age: 67 Year
  Sex: Female
  Weight: 76.7 kg

DRUGS (5)
  1. PAZOPANIB [Suspect]
     Indication: SARCOMA
     Dosage: 800MG PER DAY
     Route: 048
     Dates: start: 20090619
  2. GLIMEPIRIDE [Concomitant]
     Indication: DIABETES MELLITUS
     Dosage: 1MG PER DAY
     Route: 048
     Dates: start: 20090303
  3. LIPITOR [Concomitant]
     Dosage: 10MG PER DAY
     Route: 048
     Dates: start: 20090213
  4. ASPIRIN [Concomitant]
     Indication: PAIN
     Dosage: 81MG PER DAY
     Route: 048
     Dates: start: 20090303
  5. MULTI-VITAMIN [Concomitant]
     Indication: VITAMIN SUPPLEMENTATION

REACTIONS (8)
  - BLOOD ALKALINE PHOSPHATASE INCREASED [None]
  - DECREASED APPETITE [None]
  - DEHYDRATION [None]
  - DEPRESSION [None]
  - DIARRHOEA [None]
  - FATIGUE [None]
  - HYPOTHYROIDISM [None]
  - NAUSEA [None]
